FAERS Safety Report 14482942 (Version 2)
Quarter: 2018Q2

REPORT INFORMATION
  Report Type: Spontaneous
  Country: DE (occurrence: DE)
  Receive Date: 20180203
  Receipt Date: 20180406
  Transmission Date: 20180711
  Serious: Yes (Death, Life-Threatening, Hospitalization)
  Sender: FDA-Public Use
  Company Number: DE-AUROBINDO-AUR-APL-2018-004428

PATIENT
  Age: 90 Year
  Sex: Female
  Weight: 54 kg

DRUGS (10)
  1. TORASEMID [Concomitant]
     Active Substance: TORSEMIDE
     Dosage: DAILY DOSE: 10 MG MILLGRAM(S) EVERY DAYS
     Route: 048
  2. ELIQUIS [Suspect]
     Active Substance: APIXABAN
     Indication: ATRIAL FIBRILLATION
     Dosage: 2.5MG
     Route: 048
     Dates: start: 20170315, end: 20170327
  3. VANCOMYCIN [Concomitant]
     Active Substance: VANCOMYCIN
     Indication: ENTEROCOLITIS
     Route: 065
  4. METOPROLOL. [Concomitant]
     Active Substance: METOPROLOL
     Indication: CARDIAC FAILURE CHRONIC
     Dosage: DAILY DOSE: 95 MG MILLGRAM(S) EVERY DAYS
     Route: 048
  5. L-THYROXIN                         /00068002/ [Concomitant]
     Indication: HYPOTHYROIDISM
     Dosage: 125 MICROGRAM
     Route: 048
  6. TORASEMID [Concomitant]
     Active Substance: TORSEMIDE
     Indication: CARDIAC FAILURE CHRONIC
     Dosage: DAILY DOSE: 10 MG MILLGRAM(S) EVERY DAYS
     Route: 048
  7. L-THYROXIN                         /00068002/ [Concomitant]
     Route: 048
  8. METFORMIN [Suspect]
     Active Substance: METFORMIN HYDROCHLORIDE
     Indication: TYPE 2 DIABETES MELLITUS
     Dosage: DAILY DOSE: 1000 MG MILLGRAM(S) EVERY DAYS
     Route: 048
  9. METFORMIN [Suspect]
     Active Substance: METFORMIN HYDROCHLORIDE
     Indication: TYPE 2 DIABETES MELLITUS
  10. METOPROLOL. [Concomitant]
     Active Substance: METOPROLOL
     Dosage: DAILY DOSE: 95 MG MILLGRAM(S) EVERY DAYS
     Route: 048

REACTIONS (2)
  - Renal failure [Not Recovered/Not Resolved]
  - Hepatic failure [Not Recovered/Not Resolved]

NARRATIVE: CASE EVENT DATE: 20170417
